FAERS Safety Report 11076784 (Version 2)
Quarter: 2015Q2

REPORT INFORMATION
  Report Type: Report from Study
  Country: VE (occurrence: VE)
  Receive Date: 20150429
  Receipt Date: 20150623
  Transmission Date: 20150821
  Serious: Yes (Death)
  Sender: FDA-Public Use
  Company Number: VE-ABBVIE-15P-178-1383029-00

PATIENT
  Age: 42 Year
  Sex: Female

DRUGS (1)
  1. ZEMPLAR [Suspect]
     Active Substance: PARICALCITOL
     Indication: RENAL FAILURE
     Dosage: 5 MCG/ML (1.5 ML)
     Route: 065
     Dates: start: 201311, end: 201504

REACTIONS (1)
  - Cardiac failure [Fatal]

NARRATIVE: CASE EVENT DATE: 20150404
